FAERS Safety Report 17778010 (Version 2)
Quarter: 2023Q4

REPORT INFORMATION
  Report Type: Report from Study
  Country: DE (occurrence: DE)
  Receive Date: 20200513
  Receipt Date: 20231030
  Transmission Date: 20240110
  Serious: Yes (Death, Life-Threatening, Hospitalization, Disabling, Other)
  Sender: FDA-Public Use
  Company Number: DE-NOVARTISPH-PHHO2013DE008371

PATIENT
  Age: 63 Year
  Sex: Female
  Weight: 58 kg

DRUGS (2)
  1. AFINITOR [Suspect]
     Active Substance: EVEROLIMUS
     Indication: Neuroendocrine tumour
     Dosage: UNK
     Route: 048
     Dates: start: 20130320, end: 20130704
  2. AFINITOR [Suspect]
     Active Substance: EVEROLIMUS
     Dosage: UNK
     Route: 048
     Dates: start: 20130520, end: 20130614

REACTIONS (5)
  - Weight decreased [Fatal]
  - Neoplasm progression [Fatal]
  - Respiratory failure [Fatal]
  - Pericardial effusion [Recovered/Resolved with Sequelae]
  - Infection [Recovered/Resolved]

NARRATIVE: CASE EVENT DATE: 20130501
